FAERS Safety Report 7073920-X (Version None)
Quarter: 2010Q4

REPORT INFORMATION
  Report Type: 
  Country: None (occurrence: None)
  Receive Date: 20101029
  Receipt Date: 20101026
  Transmission Date: 20110411
  Serious: Yes (Life-Threatening)
  Sender: FDA-Public Use
  Company Number: JP-SANOFI-AVENTIS-2010SA065458

PATIENT
  Age: 68 Year
  Sex: Female

DRUGS (1)
  1. OXALIPLATIN [Suspect]
     Route: 041

REACTIONS (1)
  - ALTERED STATE OF CONSCIOUSNESS [None]
